FAERS Safety Report 7986197-5 (Version None)
Quarter: 2011Q4

REPORT INFORMATION
  Report Type: 
  Country: None (occurrence: None)
  Receive Date: 20111216
  Receipt Date: 20111208
  Transmission Date: 20120403
  Serious: Yes (Hospitalization)
  Sender: FDA-Public Use
  Company Number: US-GLAXOSMITHKLINE-A0957329A

PATIENT
  Age: 30 Year
  Sex: Female

DRUGS (3)
  1. ATIVAN [Concomitant]
  2. LAMICTAL [Suspect]
     Dosage: 400MG PER DAY
     Route: 048
     Dates: start: 20110901, end: 20111022
  3. LAMICTAL [Suspect]
     Indication: EPILEPSY
     Dosage: 400MG PER DAY
     Route: 048
     Dates: start: 20110301, end: 20110831

REACTIONS (9)
  - DRUG INEFFECTIVE [None]
  - TREMOR [None]
  - MUSCLE TWITCHING [None]
  - HEADACHE [None]
  - VOMITING [None]
  - CONVULSION [None]
  - VERTIGO [None]
  - INSOMNIA [None]
  - OVERDOSE [None]
